FAERS Safety Report 24294298 (Version 2)
Quarter: 2025Q3

REPORT INFORMATION
  Report Type: Spontaneous
  Country: US (occurrence: US)
  Receive Date: 20240906
  Receipt Date: 20250905
  Transmission Date: 20251020
  Serious: No
  Sender: DOMPE FARMACEUTICI
  Company Number: US-FARMAPROD-202406-2346

PATIENT
  Sex: Female

DRUGS (9)
  1. OXERVATE [Suspect]
     Active Substance: CENEGERMIN-BKBJ
     Indication: Neurotrophic keratopathy
     Route: 047
     Dates: start: 20240607
  2. OXERVATE [Suspect]
     Active Substance: CENEGERMIN-BKBJ
  3. OXERVATE [Suspect]
     Active Substance: CENEGERMIN-BKBJ
  4. XIIDRA [Suspect]
     Active Substance: LIFITEGRAST
  5. LISINOPRIL [Concomitant]
     Active Substance: LISINOPRIL
  6. VITAMIN D-400 [Concomitant]
  7. LEVOTHYROXINE SODIUM [Concomitant]
     Active Substance: LEVOTHYROXINE SODIUM
  8. ATORVASTATIN CALCIUM [Concomitant]
     Active Substance: ATORVASTATIN CALCIUM
  9. BISOPROLOL FUMARATE [Concomitant]
     Active Substance: BISOPROLOL FUMARATE

REACTIONS (5)
  - Eye pain [Not Recovered/Not Resolved]
  - Drug interaction [Unknown]
  - Periorbital pain [Unknown]
  - Inappropriate schedule of product administration [Unknown]
  - Dry eye [Unknown]
